FAERS Safety Report 19431934 (Version 2)
Quarter: 2021Q4

REPORT INFORMATION
  Report Type: Spontaneous
  Country: US (occurrence: None)
  Receive Date: 20210617
  Receipt Date: 20211203
  Transmission Date: 20220303
  Serious: Yes (Hospitalization, Other)
  Sender: FDA-Public Use
  Company Number: 2021A536293

PATIENT
  Sex: Female
  Weight: 104.3 kg

DRUGS (35)
  1. NEXIUM [Suspect]
     Active Substance: ESOMEPRAZOLE MAGNESIUM
     Indication: Gastrooesophageal reflux disease
     Dosage: 40 MG, BID
     Route: 048
     Dates: start: 2010, end: 2019
  2. NEXIUM [Suspect]
     Active Substance: ESOMEPRAZOLE MAGNESIUM
     Indication: Oesophagitis
     Dosage: 40 MG, BID
     Route: 048
     Dates: start: 2010, end: 2019
  3. NEXIUM [Suspect]
     Active Substance: ESOMEPRAZOLE MAGNESIUM
     Indication: Product used for unknown indication
     Dosage: 40 MG, BID
     Route: 048
     Dates: start: 2010, end: 2019
  4. NEXIUM [Suspect]
     Active Substance: ESOMEPRAZOLE MAGNESIUM
     Indication: Gastrooesophageal reflux disease
     Dosage: 40 MG,QD
     Route: 048
     Dates: start: 20100927, end: 20141019
  5. NEXIUM [Suspect]
     Active Substance: ESOMEPRAZOLE MAGNESIUM
     Indication: Oesophagitis
     Dosage: 40 MG,QD
     Route: 048
     Dates: start: 20100927, end: 20141019
  6. NEXIUM [Suspect]
     Active Substance: ESOMEPRAZOLE MAGNESIUM
     Indication: Product used for unknown indication
     Dosage: 40 MG,QD
     Route: 048
     Dates: start: 20100927, end: 20141019
  7. NEXIUM [Suspect]
     Active Substance: ESOMEPRAZOLE MAGNESIUM
     Indication: Gastrooesophageal reflux disease
     Dosage: 40 MG,BID
     Route: 048
  8. NEXIUM [Suspect]
     Active Substance: ESOMEPRAZOLE MAGNESIUM
     Indication: Oesophagitis
     Dosage: 40 MG,BID
     Route: 048
  9. NEXIUM [Suspect]
     Active Substance: ESOMEPRAZOLE MAGNESIUM
     Indication: Product used for unknown indication
     Dosage: 40 MG,BID
     Route: 048
  10. NEXIUM [Suspect]
     Active Substance: ESOMEPRAZOLE MAGNESIUM
     Indication: Gastrooesophageal reflux disease
     Dosage: 40 MG,BID
     Route: 048
     Dates: start: 2014, end: 2019
  11. NEXIUM [Suspect]
     Active Substance: ESOMEPRAZOLE MAGNESIUM
     Indication: Oesophagitis
     Dosage: 40 MG,BID
     Route: 048
     Dates: start: 2014, end: 2019
  12. NEXIUM [Suspect]
     Active Substance: ESOMEPRAZOLE MAGNESIUM
     Indication: Product used for unknown indication
     Dosage: 40 MG,BID
     Route: 048
     Dates: start: 2014, end: 2019
  13. NEXIUM 24HR [Suspect]
     Active Substance: ESOMEPRAZOLE MAGNESIUM
     Indication: Gastrooesophageal reflux disease
     Route: 048
  14. NEXIUM 24HR [Suspect]
     Active Substance: ESOMEPRAZOLE MAGNESIUM
     Indication: Oesophagitis
     Route: 048
  15. PRILOSEC [Suspect]
     Active Substance: OMEPRAZOLE MAGNESIUM
     Indication: Gastrooesophageal reflux disease
     Dosage: 20 MG, BID
     Route: 048
     Dates: start: 2010, end: 2019
  16. PRILOSEC [Suspect]
     Active Substance: OMEPRAZOLE MAGNESIUM
     Indication: Oesophagitis
     Dosage: 20 MG, BID
     Route: 048
     Dates: start: 2010, end: 2019
  17. PRILOSEC [Suspect]
     Active Substance: OMEPRAZOLE MAGNESIUM
     Indication: Gastrooesophageal reflux disease
     Dosage: 40 MG, BID
     Route: 048
     Dates: start: 2010, end: 2019
  18. PRILOSEC [Suspect]
     Active Substance: OMEPRAZOLE MAGNESIUM
     Indication: Oesophagitis
     Dosage: 40 MG, BID
     Route: 048
     Dates: start: 2010, end: 2019
  19. PRILOSEC [Suspect]
     Active Substance: OMEPRAZOLE MAGNESIUM
     Indication: Gastrooesophageal reflux disease
     Dosage: 20 MG, BID
     Route: 048
  20. PRILOSEC [Suspect]
     Active Substance: OMEPRAZOLE MAGNESIUM
     Indication: Oesophagitis
     Dosage: 20 MG, BID
     Route: 048
  21. PRILOSEC OTC [Suspect]
     Active Substance: OMEPRAZOLE MAGNESIUM
     Indication: Gastrooesophageal reflux disease
     Dosage: 20 MG, BID
     Route: 048
     Dates: start: 2010, end: 2019
  22. PRILOSEC OTC [Suspect]
     Active Substance: OMEPRAZOLE MAGNESIUM
     Indication: Oesophagitis
     Dosage: 20 MG, BID
     Route: 048
     Dates: start: 2010, end: 2019
  23. PRILOSEC OTC [Suspect]
     Active Substance: OMEPRAZOLE MAGNESIUM
     Indication: Gastrooesophageal reflux disease
     Dosage: 40 MG, BID
     Route: 048
     Dates: start: 2010, end: 2019
  24. PRILOSEC OTC [Suspect]
     Active Substance: OMEPRAZOLE MAGNESIUM
     Indication: Oesophagitis
     Dosage: 40 MG, BID
     Route: 048
     Dates: start: 2010, end: 2019
  25. OMEPRAZOLE [Suspect]
     Active Substance: OMEPRAZOLE
     Indication: Gastrooesophageal reflux disease
     Dosage: 20 MG, QD
     Route: 065
  26. OMEPRAZOLE [Suspect]
     Active Substance: OMEPRAZOLE
     Indication: Oesophagitis
     Dosage: 20 MG, QD
     Route: 065
  27. PREVACID [Suspect]
     Active Substance: LANSOPRAZOLE
     Indication: Gastrooesophageal reflux disease
     Dosage: PROLONGED-RELEASE CAPSULE
     Route: 065
     Dates: start: 2010, end: 2019
  28. PREVACID [Suspect]
     Active Substance: LANSOPRAZOLE
     Indication: Oesophagitis
     Dosage: PROLONGED-RELEASE CAPSULE
     Route: 065
     Dates: start: 2010, end: 2019
  29. PROTONIX [Suspect]
     Active Substance: PANTOPRAZOLE SODIUM
     Indication: Gastrooesophageal reflux disease
     Dosage: 40 MG, BID
     Route: 065
     Dates: start: 2010, end: 2019
  30. PROTONIX [Suspect]
     Active Substance: PANTOPRAZOLE SODIUM
     Indication: Oesophagitis
     Dosage: 40 MG, BID
     Route: 065
     Dates: start: 2010, end: 2019
  31. PROTONIX [Suspect]
     Active Substance: PANTOPRAZOLE SODIUM
     Indication: Gastrooesophageal reflux disease
     Dosage: 40 MG, BID
     Route: 065
     Dates: start: 2010, end: 2019
  32. PROTONIX [Suspect]
     Active Substance: PANTOPRAZOLE SODIUM
     Indication: Oesophagitis
     Dosage: 40 MG, BID
     Route: 065
     Dates: start: 2010, end: 2019
  33. PROTONIX [Suspect]
     Active Substance: PANTOPRAZOLE SODIUM
     Indication: Gastrooesophageal reflux disease
     Dosage: 40 MG, BID
     Route: 048
     Dates: start: 20150413, end: 20150712
  34. PROTONIX [Suspect]
     Active Substance: PANTOPRAZOLE SODIUM
     Indication: Oesophagitis
     Dosage: 40 MG, BID
     Route: 048
     Dates: start: 20150413, end: 20150712
  35. PROTONIX [Suspect]
     Active Substance: PANTOPRAZOLE SODIUM
     Indication: Product used for unknown indication
     Dosage: 40 MG BID
     Route: 065

REACTIONS (17)
  - End stage renal disease [Not Recovered/Not Resolved]
  - Nephrectomy [Unknown]
  - Acute kidney injury [Unknown]
  - Chronic kidney disease [Not Recovered/Not Resolved]
  - Nephrolithiasis [Unknown]
  - Acute kidney injury [Not Recovered/Not Resolved]
  - Nephrotic syndrome [Unknown]
  - Nephrogenic anaemia [Unknown]
  - Renal transplant [Unknown]
  - Dialysis [Not Recovered/Not Resolved]
  - Urinary incontinence [Unknown]
  - Diabetic nephropathy [Unknown]
  - Renal hypertension [Unknown]
  - Diabetic end stage renal disease [Unknown]
  - Renal cyst [Unknown]
  - Proteinuria [Unknown]
  - Hypertension [Unknown]

NARRATIVE: CASE EVENT DATE: 20160318
